FAERS Safety Report 22316416 (Version 1)
Quarter: 2023Q2

REPORT INFORMATION
  Report Type: Report from Study
  Country: EG (occurrence: EG)
  Receive Date: 20230513
  Receipt Date: 20230513
  Transmission Date: 20230722
  Serious: Yes (Other)
  Sender: FDA-Public Use
  Company Number: EG-002147023-NVSC2023EG107505

PATIENT
  Sex: Male

DRUGS (1)
  1. OMNITROPE [Suspect]
     Active Substance: SOMATROPIN
     Indication: Growth hormone deficiency
     Dosage: 18 DASHES BY INSULIN SYRINGE
     Route: 058

REACTIONS (4)
  - Injection site scar [Recovered/Resolved]
  - Fear of injection [Recovered/Resolved]
  - Crying [Recovered/Resolved]
  - Drug administered in wrong device [Recovered/Resolved]
